FAERS Safety Report 14068297 (Version 3)
Quarter: 2017Q4

REPORT INFORMATION
  Report Type: Spontaneous
  Country: JP (occurrence: JP)
  Receive Date: 20171010
  Receipt Date: 20171121
  Transmission Date: 20180321
  Serious: Yes (Hospitalization, Other)
  Sender: FDA-Public Use
  Company Number: JP-SHIRE-JP201724363

PATIENT

DRUGS (10)
  1. EXCELASE [Concomitant]
     Active Substance: PANCRELIPASE
     Indication: DIARRHOEA
  2. LIALDA [Suspect]
     Active Substance: MESALAMINE
     Indication: COLITIS ULCERATIVE
     Dosage: 1200 MG, UNK
     Route: 048
     Dates: start: 20170904, end: 20170908
  3. PROTECADIN [Concomitant]
     Active Substance: LAFUTIDINE
     Indication: GASTRITIS PROPHYLAXIS
  4. LIALDA [Suspect]
     Active Substance: MESALAMINE
     Dosage: 4800 MG, UNK
     Route: 048
     Dates: start: 20170905, end: 20170913
  5. MUCOSTA [Concomitant]
     Active Substance: REBAMIPIDE
     Indication: GASTRITIS PROPHYLAXIS
  6. CEREKINON [Concomitant]
     Active Substance: TRIMEBUTINE
     Indication: DIARRHOEA
  7. SALAZOSULFAPYRIDINE [Concomitant]
     Active Substance: SULFASALAZINE
     Indication: PRODUCT USED FOR UNKNOWN INDICATION
     Dosage: UNK
     Route: 048
  8. TRANCOLON [Concomitant]
     Active Substance: MEPENZOLATE BROMIDE
     Indication: DIARRHOEA
  9. ENTERONON-R [Concomitant]
     Active Substance: PROBIOTICS NOS
     Indication: DIARRHOEA
  10. LAC-B [Concomitant]
     Active Substance: BIFIDOBACTERIUM SPP.
     Indication: DIARRHOEA

REACTIONS (1)
  - Pancreatitis acute [Recovered/Resolved]

NARRATIVE: CASE EVENT DATE: 20170908
